FAERS Safety Report 4384687-8 (Version None)
Quarter: 2004Q2

REPORT INFORMATION
  Report Type: 
  Country: None (occurrence: None)
  Receive Date: 20040625
  Receipt Date: 20040608
  Transmission Date: 20050107
  Serious: Yes (Death, Life-Threatening)
  Sender: FDA-Public Use
  Company Number: PHHO2004IN08252

PATIENT
  Age: 38 Year
  Sex: Male
  Weight: 57 kg

DRUGS (3)
  1. NEORAL [Suspect]
     Indication: RENAL TRANSPLANT
     Dosage: 200 MG / DAY
     Route: 048
     Dates: start: 20010221
  2. STEROIDS NOS [Concomitant]
     Indication: RENAL TRANSPLANT
     Dosage: 10 MG / DAY
     Route: 048
     Dates: start: 20010221
  3. MYCOPHENOLATE MOFETIL [Suspect]
     Indication: RENAL TRANSPLANT
     Dosage: 1500 MG / DAY
     Route: 048
     Dates: start: 20010221

REACTIONS (9)
  - ACIDOSIS [None]
  - AZOTAEMIA [None]
  - CARDIAC ARREST [None]
  - CHILLS [None]
  - CYTOMEGALOVIRUS INFECTION [None]
  - DYSPNOEA [None]
  - HYPOXIA [None]
  - PYREXIA [None]
  - TUBERCULOSIS [None]
